FAERS Safety Report 25505752 (Version 1)
Quarter: 2025Q3

REPORT INFORMATION
  Report Type: Spontaneous
  Country: US (occurrence: US)
  Receive Date: 20250702
  Receipt Date: 20250702
  Transmission Date: 20251021
  Serious: No
  Sender: VERONA PHARMA
  Company Number: US-VERONA PHARMA-VER-006521

PATIENT
  Sex: Female

DRUGS (2)
  1. OHTUVAYRE [Suspect]
     Active Substance: ENSIFENTRINE
     Indication: Product used for unknown indication
  2. OHTUVAYRE [Suspect]
     Active Substance: ENSIFENTRINE
     Dosage: UNK, QD

REACTIONS (1)
  - Diarrhoea [Unknown]
